FAERS Safety Report 5060011-2 (Version None)
Quarter: 2006Q3

REPORT INFORMATION
  Report Type: 
  Country: None (occurrence: None)
  Receive Date: 20060719
  Receipt Date: 20060704
  Transmission Date: 20061208
  Serious: Yes (Hospitalization, Other)
  Sender: FDA-Public Use
  Company Number: DEU_2006-0002330

PATIENT
  Age: 47 Year
  Sex: Female

DRUGS (2)
  1. MORPHINE SULFATE INJ [Suspect]
     Indication: PAIN
     Dosage: 3.5 MG, DAILY, INTRATHECAL
     Route: 037
  2. BUPIVACAINE [Concomitant]

REACTIONS (1)
  - INFUSION SITE MASS [None]
